FAERS Safety Report 5624462-7 (Version None)
Quarter: 2008Q1

REPORT INFORMATION
  Report Type: 
  Country: None (occurrence: None)
  Receive Date: 20080208
  Receipt Date: 20080125
  Transmission Date: 20080703
  Serious: Yes (Death)
  Sender: FDA-Public Use
  Company Number: US022560

PATIENT
  Age: 48 Year
  Sex: Female

DRUGS (4)
  1. FENTANYL [Suspect]
  2. CYCLOBENZAPRINE HCL [Suspect]
  3. PROPOXYPHENE HYDROCHLORIDE [Suspect]
  4. TRAZODONE HCL [Suspect]

REACTIONS (2)
  - CARDIAC ARREST [None]
  - RESPIRATORY ARREST [None]
